FAERS Safety Report 4682611-1 (Version None)
Quarter: 2005Q2

REPORT INFORMATION
  Report Type: 
  Country: None (occurrence: None)
  Receive Date: 20050606
  Receipt Date: 20050525
  Transmission Date: 20051028
  Serious: Yes (Other)
  Sender: FDA-Public Use
  Company Number: PHEH2005US05915

PATIENT
  Age: 29 Year
  Sex: Male

DRUGS (3)
  1. PHENYTOIN [Concomitant]
     Indication: CONVULSION
     Dosage: UNK, UNK
     Route: 048
  2. CARBAMAZEPINE [Suspect]
     Indication: CONVULSION
     Dosage: 300 MG, TID
     Route: 048
     Dates: start: 19940101, end: 19940101
  3. CARBAMAZEPINE [Suspect]
     Dosage: 300 MG, TID
     Route: 048
     Dates: start: 20000101, end: 20000101

REACTIONS (8)
  - ASPIRATION [None]
  - CONVULSION [None]
  - GINGIVAL DISORDER [None]
  - HIRSUTISM [None]
  - KIDNEY INFECTION [None]
  - LUNG INFECTION [None]
  - PHARMACEUTICAL PRODUCT COMPLAINT [None]
  - SKIN DISCOLOURATION [None]
